FAERS Safety Report 5055334-7 (Version None)
Quarter: 2006Q3

REPORT INFORMATION
  Report Type: 
  Country: None (occurrence: None)
  Receive Date: 20060714
  Receipt Date: 20060706
  Transmission Date: 20061208
  Serious: Yes (Hospitalization, Other)
  Sender: FDA-Public Use
  Company Number: EM2006-0194

PATIENT
  Age: 49 Year
  Sex: Male
  Weight: 75 kg

DRUGS (20)
  1. MACROLIN [Suspect]
     Indication: HIV INFECTION
     Dosage: SEE IMAGE
     Route: 058
     Dates: start: 20040705, end: 20040709
  2. MACROLIN [Suspect]
     Indication: HIV INFECTION
     Dosage: SEE IMAGE
     Route: 058
     Dates: start: 20040906, end: 20040910
  3. MACROLIN [Suspect]
     Indication: HIV INFECTION
     Dosage: SEE IMAGE
     Route: 058
     Dates: start: 20041103, end: 20041107
  4. MACROLIN [Suspect]
     Indication: HIV INFECTION
     Dosage: SEE IMAGE
     Route: 058
     Dates: start: 20050105, end: 20050109
  5. MACROLIN [Suspect]
  6. TRUVADA [Concomitant]
  7. REYATAZ [Concomitant]
  8. NORVIR [Concomitant]
  9. COMBIVIR [Concomitant]
  10. KETOCONAZOLE [Concomitant]
  11. DEBRIDAT ^IBRAHIM^ (TRIMEBUTINE MALEATE) [Concomitant]
  12. BACTRIM [Concomitant]
  13. FASTURTEC [Concomitant]
  14. SOLU-MEDROL [Concomitant]
  15. DEPO-MEDROL [Concomitant]
  16. ARACYTIN [Concomitant]
  17. METHOTREXATE [Concomitant]
  18. CYCLOPHOSPHAMIDE [Concomitant]
  19. VIREAD [Concomitant]
  20. EMTRIVA [Concomitant]

REACTIONS (17)
  - ANOREXIA [None]
  - ASTHENIA [None]
  - BURKITT'S LYMPHOMA [None]
  - CHOLESTASIS [None]
  - EPSTEIN-BARR VIRUS TEST POSITIVE [None]
  - FEBRILE BONE MARROW APLASIA [None]
  - GASTROINTESTINAL NECROSIS [None]
  - GENERAL PHYSICAL HEALTH DETERIORATION [None]
  - HYDRONEPHROSIS [None]
  - HYPERURICAEMIA [None]
  - HYPOKALAEMIA [None]
  - JAUNDICE [None]
  - MALNUTRITION [None]
  - NIGHT SWEATS [None]
  - RENAL FAILURE ACUTE [None]
  - VOMITING [None]
  - WEIGHT DECREASED [None]
